FAERS Safety Report 9449880 (Version 2)
Quarter: 2013Q3

REPORT INFORMATION
  Report Type: Spontaneous
  Country: JP (occurrence: JP)
  Receive Date: 20130809
  Receipt Date: 20130906
  Transmission Date: 20140515
  Serious: Yes (Life-Threatening, Hospitalization, Other)
  Sender: FDA-Public Use
  Company Number: JP-ASTRAZENECA-2013SE59705

PATIENT
  Age: 33306 Day
  Sex: Female
  Weight: 40 kg

DRUGS (1)
  1. NEXIUM [Suspect]
     Route: 048
     Dates: start: 20130622, end: 20130731

REACTIONS (4)
  - Water intoxication [Unknown]
  - Suicidal ideation [Recovered/Resolved]
  - Hyponatraemia [Recovered/Resolved]
  - Chest discomfort [Recovered/Resolved]
